FAERS Safety Report 7738937-8 (Version None)
Quarter: 2011Q3

REPORT INFORMATION
  Report Type: 
  Country: None (occurrence: None)
  Receive Date: 20110909
  Receipt Date: 20110727
  Transmission Date: 20111222
  Serious: Yes (Hospitalization, Other)
  Sender: FDA-Public Use
  Company Number: US-BIOGENIDEC-2011BI018343

PATIENT
  Age: 53 Year
  Sex: Female
  Weight: 92 kg

DRUGS (22)
  1. ZANAFLEX [Concomitant]
  2. ZOVIRAX [Concomitant]
  3. NEURONTIN [Concomitant]
  4. TYSABRI [Suspect]
     Indication: MULTIPLE SCLEROSIS
     Route: 042
     Dates: start: 20070308, end: 20110414
  5. ZANAFLEX [Concomitant]
  6. XANAX [Concomitant]
     Dates: start: 20110701
  7. LEVOTHYROXINE SODIUM [Concomitant]
  8. TOBRAMYCIN [Concomitant]
  9. NITROFURANTOIN [Concomitant]
  10. ASPIRIN [Concomitant]
  11. TOVIAZ [Concomitant]
  12. BACLOFEN [Concomitant]
  13. LIPITOR [Concomitant]
  14. CEFTIN [Concomitant]
  15. OXYBUTYNIN [Concomitant]
  16. BACLOFEN [Concomitant]
  17. VITAMIN TAB [Concomitant]
  18. SLIDING SCALE INSULIN [Concomitant]
  19. LOVENOX [Concomitant]
     Indication: THROMBOSIS PROPHYLAXIS
     Dates: start: 20110701
  20. METFORMIN [Concomitant]
  21. ZOLOFT [Concomitant]
  22. PANTOPRAZOLE [Concomitant]

REACTIONS (3)
  - MULTIPLE SCLEROSIS RELAPSE [None]
  - IMMUNE RECONSTITUTION SYNDROME [None]
  - PROGRESSIVE MULTIFOCAL LEUKOENCEPHALOPATHY [None]
